FAERS Safety Report 9630325 (Version 3)
Quarter: 2013Q4

REPORT INFORMATION
  Report Type: Spontaneous
  Country: US (occurrence: US)
  Receive Date: 20131018
  Receipt Date: 20131222
  Transmission Date: 20140711
  Serious: Yes (Hospitalization, Other)
  Sender: FDA-Public Use
  Company Number: US-AMGEN-USASP2013072231

PATIENT
  Age: 50 Year
  Sex: Male

DRUGS (3)
  1. PROCRIT [Suspect]
     Indication: ANAEMIA OF MALIGNANT DISEASE
     Dosage: 10000 UNIT, MWF
     Route: 058
  2. TARCEVA [Suspect]
     Indication: NON-SMALL CELL LUNG CANCER
     Dosage: UNK
     Route: 048
  3. TARCEVA [Suspect]
     Indication: CHEMOTHERAPY

REACTIONS (14)
  - Polycythaemia [Unknown]
  - Hyperviscosity syndrome [Unknown]
  - Thrombosis mesenteric vessel [Unknown]
  - Intestinal ischaemia [Unknown]
  - Intestinal infarction [Unknown]
  - Gastrointestinal necrosis [Unknown]
  - Acute abdomen [Unknown]
  - Respiratory distress [Unknown]
  - Aspiration [Unknown]
  - Haemoglobin increased [Unknown]
  - Haematocrit increased [Recovered/Resolved]
  - Metabolic acidosis [Unknown]
  - Blood lactic acid increased [Unknown]
  - Erythema [Unknown]
